FAERS Safety Report 11400400 (Version 1)
Quarter: 2015Q3

REPORT INFORMATION
  Report Type: Spontaneous
  Country: US (occurrence: US)
  Receive Date: 20150820
  Receipt Date: 20150820
  Transmission Date: 20151125
  Serious: No
  Sender: FDA-Public Use
  Company Number: US-PFIZER INC-2015264839

PATIENT
  Age: 16 Year
  Sex: Female

DRUGS (1)
  1. XALKORI [Suspect]
     Active Substance: CRIZOTINIB
     Indication: DIFFUSE LARGE B-CELL LYMPHOMA
     Dosage: 250 MG, 2X/DAY
     Route: 048
     Dates: start: 2015, end: 2015

REACTIONS (9)
  - Dyspepsia [Unknown]
  - Oropharyngeal pain [Unknown]
  - Pain [Unknown]
  - Drug hypersensitivity [Unknown]
  - Blister [Unknown]
  - Rash [Unknown]
  - Product use issue [Unknown]
  - Fungal infection [Unknown]
  - Pharyngeal oedema [Unknown]

NARRATIVE: CASE EVENT DATE: 2015
